FAERS Safety Report 8336800-5 (Version None)
Quarter: 2012Q2

REPORT INFORMATION
  Report Type: 
  Country: None (occurrence: None)
  Receive Date: 20120504
  Receipt Date: 20120427
  Transmission Date: 20120825
  Serious: Yes (Other)
  Sender: FDA-Public Use
  Company Number: US-JNJFOC-20120414219

PATIENT
  Sex: Male
  Weight: 64.86 kg

DRUGS (3)
  1. DURAGESIC-100 [Suspect]
     Route: 062
     Dates: start: 20090101
  2. FENTANYL-100 [Suspect]
     Indication: PAIN
     Route: 062
     Dates: start: 20050101
  3. DURAGESIC-100 [Suspect]
     Indication: PAIN
     Route: 062
     Dates: start: 20030101

REACTIONS (10)
  - FEELING ABNORMAL [None]
  - PERIPHERAL COLDNESS [None]
  - NAUSEA [None]
  - HYPERHIDROSIS [None]
  - DRUG INEFFECTIVE [None]
  - DIZZINESS [None]
  - COLD SWEAT [None]
  - OSTEOPOROSIS [None]
  - DISTURBANCE IN ATTENTION [None]
  - PRODUCT PHYSICAL ISSUE [None]
